FAERS Safety Report 23506207 (Version 1)
Quarter: 2024Q1

REPORT INFORMATION
  Report Type: Spontaneous
  Country: None (occurrence: IT)
  Receive Date: 20240209
  Receipt Date: 20240209
  Transmission Date: 20240410
  Serious: Yes (Hospitalization)
  Sender: FDA-Public Use
  Company Number: IT-Harrow Eye-2152876

PATIENT
  Age: 61 Year
  Sex: Female

DRUGS (21)
  1. MAXIDEX [Suspect]
     Active Substance: DEXAMETHASONE
     Indication: Product used for unknown indication
     Dates: start: 20220506
  2. ISATUXIMAB [Suspect]
     Active Substance: ISATUXIMAB
     Dates: start: 20220506, end: 20230711
  3. CARFILZOMIB [Suspect]
     Active Substance: CARFILZOMIB
     Dates: start: 20220506
  4. LASIX [Concomitant]
     Active Substance: FUROSEMIDE
  5. MINIAS-Lormetazepam [Concomitant]
  6. ACYCLOVIR [Concomitant]
     Active Substance: ACYCLOVIR
  7. ACETAMINOPHEN [Concomitant]
     Active Substance: ACETAMINOPHEN
  8. LAMIVUDINE [Concomitant]
     Active Substance: LAMIVUDINE
  9. FENTANYL CITRATE [Concomitant]
     Active Substance: FENTANYL CITRATE
  10. CETIRIZINE [Concomitant]
     Active Substance: CETIRIZINE HYDROCHLORIDE
  11. RIOPAN PLUS- Magaldrate, Simeticone [Concomitant]
  12. FILGRASTIM [Concomitant]
     Active Substance: FILGRASTIM
     Dates: start: 20230418
  13. BACTRIM [Concomitant]
     Active Substance: SULFAMETHOXAZOLE\TRIMETHOPRIM
  14. RAMIPRIL [Concomitant]
     Active Substance: RAMIPRIL
  15. LOBIVON-Nebivolol hydrochloride [Concomitant]
  16. FENTANYL [Concomitant]
     Active Substance: FENTANYL\FENTANYL CITRATE
  17. CARDIOASPIRIN- (Acetylsalicylic acid) [Concomitant]
  18. PANTOPRAZOLE [Concomitant]
     Active Substance: PANTOPRAZOLE
  19. ALLOPURINOL [Concomitant]
     Active Substance: ALLOPURINOL
  20. LASIX R (Furosemide, Reserpine) [Concomitant]
  21. ACYCLOVIR AKRI- Aciclovir [Concomitant]

REACTIONS (2)
  - Chest pain [Recovered/Resolved]
  - Hypoaesthesia [Recovered/Resolved]

NARRATIVE: CASE EVENT DATE: 20230607
